FAERS Safety Report 24555352 (Version 1)
Quarter: 2024Q4

REPORT INFORMATION
  Report Type: Spontaneous
  Country: CO (occurrence: CO)
  Receive Date: 20241028
  Receipt Date: 20241028
  Transmission Date: 20250114
  Serious: Yes (Other)
  Sender: REGENERON
  Company Number: CO-SA-2024SA306946

PATIENT
  Age: 67 Year
  Sex: Female

DRUGS (1)
  1. PRALUENT [Suspect]
     Active Substance: ALIROCUMAB
     Indication: Hypercholesterolaemia
     Dosage: 150 MG, QOW
     Route: 058
     Dates: start: 2023

REACTIONS (1)
  - Bladder disorder [Unknown]

NARRATIVE: CASE EVENT DATE: 20230101
